FAERS Safety Report 10071111 (Version 1)
Quarter: 2014Q2

REPORT INFORMATION
  Report Type: Spontaneous
  Country: GB (occurrence: GB)
  Receive Date: 20140410
  Receipt Date: 20140410
  Transmission Date: 20141212
  Serious: Yes (Other)
  Sender: FDA-Public Use
  Company Number: GB-ACTAVIS-2014-06831

PATIENT
  Sex: Male

DRUGS (1)
  1. PARACETAMOL-CODEINE PHOSPHATE (UNKNOWN) [Suspect]
     Indication: ANALGESIC THERAPY
     Dosage: 1 OR 2 NOCTE (AT NIGHT)
     Route: 065
     Dates: start: 1989, end: 201403

REACTIONS (9)
  - Dyspnoea [Unknown]
  - Irritability [Unknown]
  - Abdominal distension [Unknown]
  - Diarrhoea [Unknown]
  - Urinary tract disorder [Recovering/Resolving]
  - Aggression [Recovering/Resolving]
  - Malaise [Recovering/Resolving]
  - Constipation [Recovering/Resolving]
  - Nausea [Recovering/Resolving]
